FAERS Safety Report 25860288 (Version 4)
Quarter: 2025Q4

REPORT INFORMATION
  Report Type: Spontaneous
  Country: US (occurrence: US)
  Receive Date: 20250929
  Receipt Date: 20251105
  Transmission Date: 20260118
  Serious: Yes (Other)
  Sender: CSL BEHRING
  Company Number: US-BEH-2025220127

PATIENT
  Age: 31 Year
  Sex: Female
  Weight: 144 kg

DRUGS (7)
  1. MIRCERA [Suspect]
     Active Substance: METHOXY POLYETHYLENE GLYCOL-EPOETIN BETA
     Indication: Nephrogenic anaemia
     Dosage: 100 ?G (EVERY 2 WEEKS)
     Route: 040
     Dates: start: 20250825, end: 20250923
  2. VENOFER [Suspect]
     Active Substance: IRON SUCROSE
     Indication: Product used for unknown indication
     Dosage: UNK
     Route: 065
     Dates: start: 20250825, end: 20250825
  3. VENOFER [Suspect]
     Active Substance: IRON SUCROSE
     Dosage: UNK
     Route: 065
     Dates: start: 20250909, end: 20250909
  4. VENOFER [Suspect]
     Active Substance: IRON SUCROSE
     Dosage: UNK
     Route: 065
     Dates: start: 202509, end: 202509
  5. HECTOROL [Suspect]
     Active Substance: DOXERCALCIFEROL
     Dosage: UNK
     Route: 065
     Dates: start: 20250825, end: 20250825
  6. HECTOROL [Suspect]
     Active Substance: DOXERCALCIFEROL
     Dosage: UNK
     Route: 065
     Dates: start: 20250909, end: 20250909
  7. HECTOROL [Suspect]
     Active Substance: DOXERCALCIFEROL
     Dosage: UNK
     Route: 065
     Dates: start: 202509, end: 202509

REACTIONS (7)
  - Drug hypersensitivity [Recovered/Resolved]
  - Brain fog [Recovered/Resolved]
  - Musculoskeletal discomfort [Recovered/Resolved]
  - Blood pressure increased [Recovered/Resolved]
  - Heart rate increased [Recovered/Resolved]
  - Chest pain [Recovered/Resolved]
  - Dyspnoea [Recovered/Resolved]

NARRATIVE: CASE EVENT DATE: 20250923
